FAERS Safety Report 8069556-4 (Version None)
Quarter: 2012Q1

REPORT INFORMATION
  Report Type: 
  Country: None (occurrence: None)
  Receive Date: 20120125
  Receipt Date: 20120116
  Transmission Date: 20120608
  Serious: Yes (Other)
  Sender: FDA-Public Use
  Company Number: CHPA2012US001448

PATIENT
  Sex: Female

DRUGS (1)
  1. EXCEDRIN UNKNOWN [Suspect]
     Dosage: UNK DF, UNK
     Route: 048

REACTIONS (7)
  - HAEMORRHAGE [None]
  - LYMPHADENOPATHY [None]
  - TONSIL CANCER [None]
  - OROPHARYNGEAL PAIN [None]
  - DYSPHAGIA [None]
  - METASTASIS [None]
  - APHONIA [None]
